FAERS Safety Report 11700673 (Version 1)
Quarter: 2015Q4

REPORT INFORMATION
  Report Type: Spontaneous
  Country: US (occurrence: None)
  Receive Date: 20151104
  Receipt Date: 20151104
  Transmission Date: 20160304
  Serious: No
  Sender: FDA-Public Use
  Company Number: None

PATIENT
  Age: 64 Year
  Sex: Male
  Weight: 117 kg

DRUGS (4)
  1. OMEOPRAZOLE [Concomitant]
     Active Substance: OMEPRAZOLE
  2. RISPERADONE [Suspect]
     Active Substance: RISPERIDONE
     Indication: AFFECTIVE DISORDER
     Dosage: 0.5 MG, QHS/BEDTIME, ORAL
     Route: 048
     Dates: start: 20151029
  3. AMLODIPINE [Concomitant]
     Active Substance: AMLODIPINE BESYLATE
  4. ASPIRIN. [Concomitant]
     Active Substance: ASPIRIN

REACTIONS (1)
  - Dystonia [None]

NARRATIVE: CASE EVENT DATE: 20151029
